FAERS Safety Report 5165530-6 (Version None)
Quarter: 2006Q4

REPORT INFORMATION
  Report Type: 
  Country: None (occurrence: None)
  Receive Date: 20061206
  Receipt Date: 20061128
  Transmission Date: 20070319
  Serious: Yes (Hospitalization, Other)
  Sender: FDA-Public Use
  Company Number: IE-NOVOPROD-258913

PATIENT
  Age: 82 Year
  Sex: Female

DRUGS (1)
  1. NOVONORM [Suspect]
     Indication: DIABETES MELLITUS
     Route: 048

REACTIONS (1)
  - OCULAR ICTERUS [None]
